FAERS Safety Report 12119455 (Version 2)
Quarter: 2016Q2

REPORT INFORMATION
  Report Type: Spontaneous
  Country: CA (occurrence: CA)
  Receive Date: 20160226
  Receipt Date: 20160512
  Transmission Date: 20160815
  Serious: Yes (Hospitalization, Other)
  Sender: FDA-Public Use
  Company Number: CA-PFIZER INC-2016110852

PATIENT
  Age: 4 Year
  Sex: Male

DRUGS (2)
  1. CHILDRENS ADVIL [Suspect]
     Active Substance: IBUPROFEN
     Indication: PYREXIA
     Dosage: 10 ML, 3X/DAY
     Dates: start: 20151103, end: 20151105
  2. CHILDRENS TYLENOL [Concomitant]
     Active Substance: ACETAMINOPHEN
     Dosage: UNK
     Dates: start: 20151103, end: 20151106

REACTIONS (6)
  - Poor quality drug administered [Unknown]
  - Overdose [Recovered/Resolved]
  - Haematemesis [Recovered/Resolved]
  - Drug administration error [Unknown]
  - Crying [Unknown]
  - Product quality issue [Unknown]

NARRATIVE: CASE EVENT DATE: 201511
